FAERS Safety Report 6479526-5 (Version None)
Quarter: 2009Q4

REPORT INFORMATION
  Report Type: 
  Country: None (occurrence: None)
  Receive Date: 20091207
  Receipt Date: 20091207
  Transmission Date: 20100525
  Serious: No
  Sender: FDA-Public Use
  Company Number: None

PATIENT
  Sex: Female
  Weight: 99.7913 kg

DRUGS (1)
  1. LUMIGAN [Suspect]
     Indication: GLAUCOMA
     Dosage: ONE DROP IN EACH EY ONCE A DAY AT NIGH
     Dates: start: 20091015, end: 20091203

REACTIONS (2)
  - HAIR GROWTH ABNORMAL [None]
  - SKIN DISCOLOURATION [None]
